FAERS Safety Report 10360495 (Version 3)
Quarter: 2015Q4

REPORT INFORMATION
  Report Type: Spontaneous
  Country: US (occurrence: US)
  Receive Date: 20140804
  Receipt Date: 20151119
  Transmission Date: 20160304
  Serious: Yes (Other)
  Sender: FDA-Public Use
  Company Number: US-PFIZER INC-2014212538

PATIENT
  Age: 56 Year
  Sex: Female
  Weight: 47 kg

DRUGS (7)
  1. DILANTIN [Suspect]
     Active Substance: PHENYTOIN
     Dosage: 100 MG, 2X/DAY (ONE CAPSULE IN THE MORNING AND ONE IN NIGHT)
     Route: 048
  2. DILANTIN [Suspect]
     Active Substance: PHENYTOIN
     Indication: GENERALISED TONIC-CLONIC SEIZURE
     Dosage: 200MG CAPSULES ONE IN THE MORNING AND TWO AT NIGHT
     Route: 048
     Dates: start: 1980
  3. ASA [Concomitant]
     Active Substance: ASPIRIN
     Dosage: 81 MG, UNK
  4. MOGADON [Suspect]
     Active Substance: NITRAZEPAM
     Indication: SEIZURE
     Dosage: 5 MG, 4X/DAY
     Route: 048
     Dates: start: 1986
  5. DILANTIN [Suspect]
     Active Substance: PHENYTOIN
     Indication: SEIZURE
     Dosage: 100 MG, 3X/DAY (ONE CAPSULE IN MORNING, ONE IN AFTERNOON AND ONE IN NIGHT)
     Route: 048
     Dates: start: 19810629
  6. MOGADON [Suspect]
     Active Substance: NITRAZEPAM
     Indication: CONVULSION PROPHYLAXIS
  7. TEGRETOL [Concomitant]
     Active Substance: CARBAMAZEPINE
     Indication: SEIZURE
     Dosage: 200 MG, EVERY 4 HRS
     Route: 048

REACTIONS (2)
  - Seizure [Recovered/Resolved]
  - Condition aggravated [Recovered/Resolved]
